FAERS Safety Report 14690501 (Version 1)
Quarter: 2018Q1

REPORT INFORMATION
  Report Type: Spontaneous
  Country: US (occurrence: US)
  Receive Date: 20180328
  Receipt Date: 20180328
  Transmission Date: 20180509
  Serious: No
  Sender: FDA-Public Use
  Company Number: US-PERRIGO-18US000454

PATIENT
  Age: 79 Year
  Sex: Female
  Weight: 102.4 kg

DRUGS (3)
  1. NAPROXEN                           /00256202/ [Concomitant]
     Active Substance: NAPROXEN SODIUM
     Indication: CHEST PAIN
     Dosage: UNK
     Route: 048
     Dates: start: 201711
  2. METOPROLOL. [Concomitant]
     Active Substance: METOPROLOL
     Indication: HYPERTENSION
     Dosage: UNK
     Route: 065
     Dates: start: 2008
  3. GENTAMICIN SULFATE. [Suspect]
     Active Substance: GENTAMICIN SULFATE
     Indication: INFECTION
     Dosage: SMALL AMOUNT, BID
     Route: 061
     Dates: start: 20171227, end: 20171228

REACTIONS (5)
  - Condition aggravated [Not Recovered/Not Resolved]
  - Drug ineffective [Unknown]
  - Application site pain [Recovered/Resolved]
  - Application site dryness [Recovering/Resolving]
  - Inappropriate schedule of drug administration [Recovered/Resolved]

NARRATIVE: CASE EVENT DATE: 20171227
